FAERS Safety Report 22917103 (Version 2)
Quarter: 2023Q4

REPORT INFORMATION
  Report Type: Other
  Country: US (occurrence: US)
  Receive Date: 20230907
  Receipt Date: 20231127
  Transmission Date: 20240109
  Serious: No
  Sender: FDA-Public Use
  Company Number: US-TRAVERE-2023TVT00322

PATIENT
  Sex: Male
  Weight: 195.04 kg

DRUGS (17)
  1. FILSPARI [Suspect]
     Active Substance: SPARSENTAN
     Indication: Chronic kidney disease
     Dosage: 400 MG
     Route: 048
     Dates: start: 20230601
  2. FILSPARI [Suspect]
     Active Substance: SPARSENTAN
     Dosage: 1 TABLET ONCE DAILY ON DAYS 1 THROUGH 14, THEN TAKE 2 TABLETS ONCE DAILY ON DAYS 15 THROUGH 30
     Route: 048
     Dates: start: 20230701
  3. TURMERIC 1053 MG [Concomitant]
  4. VITAMIN D-400 [Concomitant]
  5. SYMBICORT [Concomitant]
     Active Substance: BUDESONIDE\FORMOTEROL FUMARATE DIHYDRATE
  6. VITAMINS [Concomitant]
     Active Substance: VITAMINS
  7. MONTELUKAST SODIUM [Concomitant]
     Active Substance: MONTELUKAST SODIUM
  8. FENOFIBRATE [Concomitant]
     Active Substance: FENOFIBRATE
  9. CLONIDINE [Concomitant]
     Active Substance: CLONIDINE
  10. ZYRTEC-D [Concomitant]
     Active Substance: CETIRIZINE HYDROCHLORIDE\PSEUDOEPHEDRINE HYDROCHLORIDE
  11. ATORVASTATIN CALCIUM [Concomitant]
     Active Substance: ATORVASTATIN CALCIUM
  12. ATENOLOL [Concomitant]
     Active Substance: ATENOLOL
  13. AMLODIPINE BESYLATE [Concomitant]
     Active Substance: AMLODIPINE BESYLATE
  14. ASPIRIN [Concomitant]
     Active Substance: ASPIRIN
  15. ALLOPURINOL [Concomitant]
     Active Substance: ALLOPURINOL
  16. ALBUTEROL SULFATE [Concomitant]
     Active Substance: ALBUTEROL SULFATE
  17. BARLEY [Concomitant]
     Active Substance: BARLEY

REACTIONS (5)
  - Back pain [Unknown]
  - Dizziness [Recovered/Resolved]
  - Fatigue [Recovered/Resolved]
  - Pruritus [Recovered/Resolved]
  - Product use in unapproved indication [Unknown]
